FAERS Safety Report 5798828-9 (Version None)
Quarter: 2008Q2

REPORT INFORMATION
  Report Type: 
  Country: None (occurrence: None)
  Receive Date: 20080630
  Receipt Date: 20080304
  Transmission Date: 20081010
  Serious: Yes (Hospitalization)
  Sender: FDA-Public Use
  Company Number: 2008-00246FE

PATIENT
  Age: 41 Year
  Sex: Female

DRUGS (2)
  1. GONADOTROPIN [Suspect]
     Indication: INFERTILITY
     Dosage: 375 IU
  2. HUMAN CHORIONIC GONADOTROPIN (CHORIONIC GONADOTROPIN) [Suspect]
     Indication: OVARIAN HYPERSTIMULATION SYNDROME
     Dosage: 5000 IU

REACTIONS (8)
  - CAESAREAN SECTION [None]
  - EMOTIONAL DISTRESS [None]
  - NAUSEA [None]
  - OVARIAN CYST [None]
  - OVARIAN TORSION [None]
  - PAIN [None]
  - PREMATURE LABOUR [None]
  - PREMATURE RUPTURE OF MEMBRANES [None]
